FAERS Safety Report 21578792 (Version 1)
Quarter: 2022Q4

REPORT INFORMATION
  Report Type: Spontaneous
  Country: AT (occurrence: AT)
  Receive Date: 20221110
  Receipt Date: 20221110
  Transmission Date: 20230112
  Serious: Yes (Death, Other)
  Sender: FDA-Public Use
  Company Number: AT-DSJP-DSE-2022-128213

PATIENT
  Sex: Male

DRUGS (2)
  1. ENHERTU [Suspect]
     Active Substance: FAM-TRASTUZUMAB DERUXTECAN-NXKI
     Indication: HER2 mutant non-small cell lung cancer
     Dosage: 6.4 MG/KG
     Route: 065
  2. ENHERTU [Suspect]
     Active Substance: FAM-TRASTUZUMAB DERUXTECAN-NXKI
     Dosage: 4.6 MG/KG
     Route: 065

REACTIONS (6)
  - Death [Fatal]
  - Neutropenia [Unknown]
  - Interstitial lung disease [Unknown]
  - Asthenia [Unknown]
  - Nausea [Unknown]
  - Off label use [Unknown]
